FAERS Safety Report 4839314-X (Version None)
Quarter: 2005Q4

REPORT INFORMATION
  Report Type: 
  Country: None (occurrence: None)
  Receive Date: 20051129
  Receipt Date: 20041228
  Transmission Date: 20060501
  Serious: No
  Sender: FDA-Public Use
  Company Number: US-GLAXOSMITHKLINE-A0538565A

PATIENT
  Age: 43 Year
  Sex: Female

DRUGS (2)
  1. WELLBUTRIN [Suspect]
     Dosage: 150MG TWICE PER DAY
     Route: 048
     Dates: start: 20041207
  2. NICOTINE TRANSDERMAL PATCH [Concomitant]

REACTIONS (1)
  - PRURITUS [None]
